FAERS Safety Report 23665609 (Version 1)
Quarter: 2024Q1

REPORT INFORMATION
  Report Type: Spontaneous
  Country: ES (occurrence: ES)
  Receive Date: 20240323
  Receipt Date: 20240323
  Transmission Date: 20240410
  Serious: Yes (Death, Other)
  Sender: FDA-Public Use
  Company Number: ES-AMGEN-ESPSP2024057884

PATIENT

DRUGS (5)
  1. BLINATUMOMAB [Suspect]
     Active Substance: BLINATUMOMAB
     Indication: B-cell type acute leukaemia
     Dosage: UNK
     Route: 065
  2. TISAGENLECLEUCEL [Suspect]
     Active Substance: TISAGENLECLEUCEL
     Indication: B-cell type acute leukaemia
     Dosage: UNK
     Route: 065
  3. INOTUZUMAB OZOGAMICIN [Concomitant]
     Active Substance: INOTUZUMAB OZOGAMICIN
     Indication: B-cell type acute leukaemia
     Dosage: UNK
     Route: 065
  4. FLUDARABINE [Concomitant]
     Active Substance: FLUDARABINE PHOSPHATE
     Indication: B-cell type acute leukaemia
     Dosage: 30 MILLIGRAM/SQ. METER, QD FOR 4 DAYS
     Route: 065
  5. CYCLOPHOSPHAMIDE [Concomitant]
     Active Substance: CYCLOPHOSPHAMIDE
     Indication: B-cell type acute leukaemia
     Dosage: 500 MILLIGRAM/SQ. METER, QD FOR TWO DAYS

REACTIONS (11)
  - Acute lymphocytic leukaemia [Fatal]
  - Toxicity to various agents [Fatal]
  - Transplantation complication [Fatal]
  - Cytokine release syndrome [Fatal]
  - Central nervous system leukaemia [Unknown]
  - Myeloid leukaemia [Unknown]
  - Transformation to acute myeloid leukaemia [Unknown]
  - Bone marrow leukaemic cell infiltration [Unknown]
  - Leukaemic infiltration extramedullary [Unknown]
  - Blast cells present [Unknown]
  - Post-depletion B-cell recovery [Unknown]
